FAERS Safety Report 8800885 (Version 1)
Quarter: 2012Q4

REPORT INFORMATION
  Report Type: 
  Country: US (occurrence: US)
  Receive Date: 20120921
  Receipt Date: 20120921
  Transmission Date: 20130627
  Serious: Yes (Hospitalization)
  Sender: FDA-Public Use
  Company Number: US-DX529-2012DX000154

PATIENT
  Age: 16 Year
  Sex: Female
  Weight: 58.97 kg

DRUGS (5)
  1. KALBITOR [Suspect]
     Indication: HEREDITARY ANGIOEDEMA
     Route: 058
     Dates: start: 20120202, end: 20120202
  2. KALBITOR [Suspect]
     Indication: HEREDITARY ANGIOEDEMA
     Route: 058
     Dates: start: 20120713, end: 20120713
  3. KALBITOR [Suspect]
     Indication: HEREDITARY ANGIOEDEMA
     Route: 058
     Dates: start: 20120713, end: 20120713
  4. KALBITOR [Suspect]
     Indication: HEREDITARY ANGIOEDEMA
     Route: 058
     Dates: start: 20120817, end: 20120817
  5. CITALOPRAM [Concomitant]
     Indication: DEPRESSION
     Dates: start: 201203

REACTIONS (6)
  - Syncope [Recovered/Resolved]
  - Hereditary angioedema [Recovered/Resolved]
  - Panic attack [Recovered/Resolved]
  - Heart rate decreased [Recovered/Resolved]
  - Fall [Recovered/Resolved]
  - Rash [Recovered/Resolved]
